FAERS Safety Report 24451965 (Version 1)
Quarter: 2024Q4

REPORT INFORMATION
  Report Type: Spontaneous
  Country: GB (occurrence: GB)
  Receive Date: 20241017
  Receipt Date: 20241017
  Transmission Date: 20250115
  Serious: Yes (Death, Life-Threatening, Other)
  Sender: MERCK
  Company Number: None

PATIENT
  Age: 65 Year
  Sex: Female

DRUGS (3)
  1. PEMBROLIZUMAB [Suspect]
     Active Substance: PEMBROLIZUMAB
     Indication: Endometrial cancer
     Dosage: 200MG
     Dates: start: 20240930
  2. LENVATINIB MESYLATE [Suspect]
     Active Substance: LENVATINIB MESYLATE
     Indication: Chronic myeloid leukaemia
     Dosage: 20MG OD
     Dates: start: 20240917, end: 20240930
  3. IMATINIB [Concomitant]
     Active Substance: IMATINIB
     Dosage: UNK

REACTIONS (12)
  - Death [Fatal]
  - Pneumoperitoneum [Unknown]
  - Intestinal perforation [Unknown]
  - Hydronephrosis [Unknown]
  - Ureteric dilatation [Unknown]
  - Pelvic pain [Not Recovered/Not Resolved]
  - Obstruction [Not Recovered/Not Resolved]
  - Dysuria [Not Recovered/Not Resolved]
  - Pelvic fluid collection [Unknown]
  - Abnormal loss of weight [Not Recovered/Not Resolved]
  - Abdominal pain lower [Not Recovered/Not Resolved]
  - Diarrhoea [Unknown]

NARRATIVE: CASE EVENT DATE: 20241005
